FAERS Safety Report 23101517 (Version 2)
Quarter: 2023Q4

REPORT INFORMATION
  Report Type: Spontaneous
  Country: US (occurrence: US)
  Receive Date: 20231024
  Receipt Date: 20231024
  Transmission Date: 20240109
  Serious: Yes (Hospitalization, Other)
  Sender: FDA-Public Use
  Company Number: US-BAXTER-2023BAX033335

PATIENT
  Sex: Female

DRUGS (1)
  1. VANCOMYCIN HYDROCHLORIDE [Suspect]
     Active Substance: VANCOMYCIN HYDROCHLORIDE
     Indication: Infection
     Dosage: 1G IN 5% DEXTROSE/200ML), DOSAGE FORM: SOLUTION
     Route: 065
     Dates: start: 202102

REACTIONS (4)
  - Acute kidney injury [Recovered/Resolved]
  - Infection [Unknown]
  - Accidental overdose [Unknown]
  - Product selection error [Unknown]
